FAERS Safety Report 6938187-9 (Version None)
Quarter: 2010Q3

REPORT INFORMATION
  Report Type: 
  Country: None (occurrence: None)
  Receive Date: 20100824
  Receipt Date: 20100813
  Transmission Date: 20110219
  Serious: Yes (Hospitalization)
  Sender: FDA-Public Use
  Company Number: FR-WYE-G06541010

PATIENT
  Sex: Female
  Weight: 46 kg

DRUGS (5)
  1. EFFEXOR [Suspect]
     Indication: MAJOR DEPRESSION
     Route: 048
     Dates: start: 20100623
  2. ATARAX [Concomitant]
     Dosage: 100 MG IF NEED BE
     Route: 048
  3. ACETAMINOPHEN [Concomitant]
     Dosage: 500 MG IF NEED BE
     Route: 048
  4. NEXIUM [Concomitant]
     Route: 048
  5. AUGMENTIN '125' [Concomitant]
     Indication: CYSTITIS
     Route: 048

REACTIONS (12)
  - ANTEROGRADE AMNESIA [None]
  - APLASTIC ANAEMIA [None]
  - CEREBRAL ATROPHY [None]
  - CONFUSIONAL STATE [None]
  - DISORIENTATION [None]
  - FALL [None]
  - INAPPROPRIATE ANTIDIURETIC HORMONE SECRETION [None]
  - INFLAMMATION [None]
  - NORMOCHROMIC NORMOCYTIC ANAEMIA [None]
  - OEDEMA PERIPHERAL [None]
  - PLEURAL EFFUSION [None]
  - WEIGHT INCREASED [None]
